FAERS Safety Report 5167166-X (Version None)
Quarter: 2006Q4

REPORT INFORMATION
  Report Type: 
  Country: None (occurrence: None)
  Receive Date: 20061130
  Receipt Date: 20061117
  Transmission Date: 20070319
  Serious: Yes (Death, Hospitalization)
  Sender: FDA-Public Use
  Company Number: HQWYE946120NOV06

PATIENT
  Age: 62 Year
  Sex: Male

DRUGS (4)
  1. EUPANTOL (PANTOPRAZOLE,  INJECTION) [Suspect]
     Dosage: 40 MG 1X PER 1 DAY
     Route: 042
     Dates: start: 20060101, end: 20060703
  2. LOVENOX [Suspect]
     Dosage: ^4 ML^
     Route: 058
     Dates: start: 20060630, end: 20060630
  3. PERFALGAN (PARACETAMOL, ) [Suspect]
     Dosage: 1 G 4X PER 1 DAY
     Route: 042
     Dates: start: 20060629, end: 20060630
  4. SOLU-MEDROL [Suspect]
     Dosage: 120 MG 1X PER 1 DAY
     Route: 042
     Dates: start: 20060628, end: 20060702

REACTIONS (4)
  - ASTHENIA [None]
  - GENERAL PHYSICAL HEALTH DETERIORATION [None]
  - RENAL FAILURE ACUTE [None]
  - THROMBOCYTOPENIA [None]
